FAERS Safety Report 21109612 (Version 4)
Quarter: 2023Q1

REPORT INFORMATION
  Report Type: Spontaneous
  Country: US (occurrence: US)
  Receive Date: 20220721
  Receipt Date: 20230307
  Transmission Date: 20230418
  Serious: Yes (Hospitalization, Other)
  Sender: FDA-Public Use
  Company Number: US-BRISTOL-MYERS SQUIBB COMPANY-2022-076482

PATIENT
  Age: 92 Year
  Sex: Female
  Weight: 74.3 kg

DRUGS (2)
  1. REVLIMID [Suspect]
     Active Substance: LENALIDOMIDE
     Indication: Plasma cell myeloma
     Dosage: DAILY DAY 1-21, 7 DAYS OFF (28 DAY CYCLE)
     Route: 048
     Dates: start: 20211013
  2. REVLIMID [Suspect]
     Active Substance: LENALIDOMIDE
     Dosage: DAYS 1-14 Q 28 DAYS
     Route: 048

REACTIONS (5)
  - Haemoglobin decreased [Not Recovered/Not Resolved]
  - Blood sodium decreased [Recovered/Resolved]
  - Herpes zoster [Not Recovered/Not Resolved]
  - Laboratory test abnormal [Unknown]
  - Off label use [Unknown]
